FAERS Safety Report 25127226 (Version 3)
Quarter: 2025Q4

REPORT INFORMATION
  Report Type: Spontaneous
  Country: US (occurrence: None)
  Receive Date: 20250327
  Receipt Date: 20251030
  Transmission Date: 20260117
  Serious: Yes (Hospitalization)
  Sender: UCB
  Company Number: US-UCBSA-2025004889

PATIENT
  Age: 69 Year
  Weight: 75 kg

DRUGS (1)
  1. BIMZELX [Suspect]
     Active Substance: BIMEKIZUMAB-BKZX
     Indication: Psoriasis
     Dosage: 320 MILLIGRAM, EV 4 WEEKS

REACTIONS (5)
  - Rash [Recovered/Resolved]
  - Throat irritation [Recovering/Resolving]
  - Chest pain [Recovering/Resolving]
  - Stomatitis [Recovering/Resolving]
  - Blister [Not Recovered/Not Resolved]
